FAERS Safety Report 24048652 (Version 1)
Quarter: 2024Q3

REPORT INFORMATION
  Report Type: Spontaneous
  Country: JP (occurrence: JP)
  Receive Date: 20240704
  Receipt Date: 20240704
  Transmission Date: 20241016
  Serious: Yes (Hospitalization)
  Sender: Haleon PLC
  Company Number: JP-HALEON-2183776

PATIENT

DRUGS (1)
  1. NICOTINELL [Suspect]
     Active Substance: NICOTINE
     Indication: Product used for unknown indication
     Dosage: TIME INTERVAL: AS NECESSARY

REACTIONS (1)
  - Hospitalisation [Unknown]
